FAERS Safety Report 4584807-6 (Version None)
Quarter: 2005Q1

REPORT INFORMATION
  Report Type: 
  Country: None (occurrence: None)
  Receive Date: 20050214
  Receipt Date: 20040920
  Transmission Date: 20050727
  Serious: Yes (Death, Hospitalization)
  Sender: FDA-Public Use
  Company Number: GMY 302

PATIENT
  Age: 67 Year
  Sex: Female

DRUGS (10)
  1. DEXAMETHASONE [Suspect]
     Indication: MULTIPLE MYELOMA
     Dosage: 40 MG/DAY, ORAL
     Route: 048
     Dates: start: 20020812, end: 20020815
  2. DEXAMETHASONE [Suspect]
     Indication: MYELOMA RECURRENCE
     Dosage: 40 MG/DAY, ORAL
     Route: 048
     Dates: start: 20020812, end: 20020815
  3. LEVOTHYROXINE SODIUM [Concomitant]
  4. PROPOXYPHENE HCL [Concomitant]
  5. ACETAMINOPHEN [Concomitant]
  6. FLUTICASONE PROPIONATE [Concomitant]
  7. SALMETEROL [Concomitant]
  8. A MULTIVITAMIN [Concomitant]
  9. TRIMETHOPRIM-SULFAMETHOXAZOLE [Concomitant]
  10. ESOMEPRAZOLE [Concomitant]

REACTIONS (7)
  - ANOREXIA [None]
  - ASTHENIA [None]
  - BREATH SOUNDS DECREASED [None]
  - CARDIAC FAILURE CONGESTIVE [None]
  - DIZZINESS [None]
  - HEART RATE IRREGULAR [None]
  - RALES [None]
